FAERS Safety Report 18158217 (Version 2)
Quarter: 2020Q3

REPORT INFORMATION
  Report Type: Report from Study
  Country: PK (occurrence: PK)
  Receive Date: 20200817
  Receipt Date: 20200826
  Transmission Date: 20201103
  Serious: Yes (Death, Hospitalization, Other)
  Sender: FDA-Public Use
  Company Number: NVSC2020PK226847

PATIENT
  Age: 42 Year
  Sex: Male

DRUGS (2)
  1. SANDIMMUN NEORAL [Suspect]
     Active Substance: CYCLOSPORINE
     Indication: BONE MARROW TRANSPLANT
     Dosage: 100 MG, BID
     Route: 048
     Dates: start: 20200619
  2. SANDIMMUN NEORAL [Suspect]
     Active Substance: CYCLOSPORINE
     Indication: MYELOFIBROSIS
     Dosage: 25 MG, 2 BID
     Route: 048
     Dates: start: 20200619

REACTIONS (2)
  - Cardio-respiratory arrest [Fatal]
  - Pneumonia [Not Recovered/Not Resolved]

NARRATIVE: CASE EVENT DATE: 20200730
